FAERS Safety Report 4526634-1 (Version None)
Quarter: 2004Q4

REPORT INFORMATION
  Report Type: 
  Country: None (occurrence: None)
  Receive Date: 20041214
  Receipt Date: 20040820
  Transmission Date: 20050328
  Serious: Yes (Other)
  Sender: FDA-Public Use
  Company Number: US-GLAXOSMITHKLINE-A0522931A

PATIENT
  Age: 35 Year
  Sex: Male
  Weight: 72.7 kg

DRUGS (3)
  1. WELLBUTRIN [Suspect]
     Indication: BIPOLAR DISORDER
     Dosage: 150MG TWICE PER DAY
     Route: 048
     Dates: start: 20040812, end: 20040817
  2. LUDIOMIL [Suspect]
     Dosage: 150MG PER DAY
  3. SYMBYAX [Suspect]

REACTIONS (7)
  - BLOOD GLUCOSE INCREASED [None]
  - FALL [None]
  - GRAND MAL CONVULSION [None]
  - JOINT DISLOCATION [None]
  - LOSS OF CONSCIOUSNESS [None]
  - MEDICATION ERROR [None]
  - UPPER LIMB FRACTURE [None]
